FAERS Safety Report 15689304 (Version 3)
Quarter: 2019Q4

REPORT INFORMATION
  Report Type: Report from Study
  Country: EC (occurrence: EC)
  Receive Date: 20181205
  Receipt Date: 20191224
  Transmission Date: 20200122
  Serious: Yes (Hospitalization, Other)
  Sender: FDA-Public Use
  Company Number: PHHY2018EC103494

PATIENT
  Age: 63 Year
  Sex: Male
  Weight: 91.5 kg

DRUGS (8)
  1. TASIGNA [Suspect]
     Active Substance: NILOTINIB
     Indication: CHRONIC MYELOID LEUKAEMIA
     Dosage: 600 MG, BID (400 MG IN THE MORNING AND 200 MG AT NIGHT)
     Route: 048
     Dates: start: 20150203, end: 20150320
  2. TASIGNA [Suspect]
     Active Substance: NILOTINIB
     Dosage: 500 MG, QD (400 MG ONE DAY AND 600 MG THE NEXT)
     Route: 048
     Dates: start: 20160810, end: 20160926
  3. TASIGNA [Suspect]
     Active Substance: NILOTINIB
     Dosage: 400 MG, BID
     Route: 048
     Dates: start: 20161212, end: 20180910
  4. TASIGNA [Suspect]
     Active Substance: NILOTINIB
     Dosage: 200 MG, QD
     Route: 048
     Dates: start: 20180921, end: 20181003
  5. MUVETT [Concomitant]
     Indication: IRRITABLE BOWEL SYNDROME
     Dosage: 300 MG, UNK
     Route: 048
     Dates: start: 201408
  6. TASIGNA [Suspect]
     Active Substance: NILOTINIB
     Dosage: 200 MG, BID
     Route: 048
     Dates: start: 20150528, end: 20160805
  7. TASIGNA [Suspect]
     Active Substance: NILOTINIB
     Dosage: 600 MG, BID (400 MG IN THE MORNING AND 200 MG AT NIGHT)
     Route: 048
     Dates: start: 20180911, end: 20180920
  8. TASIGNA [Suspect]
     Active Substance: NILOTINIB
     Dosage: 400 MG, BID
     Route: 048
     Dates: start: 20181004

REACTIONS (16)
  - Arrhythmia [Recovering/Resolving]
  - Weight increased [Recovered/Resolved]
  - Hypothyroidism [Recovering/Resolving]
  - Pain [Recovering/Resolving]
  - Prostatomegaly [Unknown]
  - Anal abscess [Recovered/Resolved]
  - Irritable bowel syndrome [Not Recovered/Not Resolved]
  - Haemorrhoids [Recovered/Resolved]
  - Dysuria [Unknown]
  - Fatigue [Recovering/Resolving]
  - Renal disorder [Unknown]
  - Cardiovascular disorder [Unknown]
  - Hepatic steatosis [Unknown]
  - Cardiac murmur [Unknown]
  - Flatulence [Recovering/Resolving]
  - Inappropriate schedule of product administration [Unknown]

NARRATIVE: CASE EVENT DATE: 2015
